FAERS Safety Report 6974215-2 (Version None)
Quarter: 2010Q3

REPORT INFORMATION
  Report Type: 
  Country: None (occurrence: None)
  Receive Date: 20100909
  Receipt Date: 20080212
  Transmission Date: 20110219
  Serious: No
  Sender: FDA-Public Use
  Company Number: US-WYE-H02137808

PATIENT
  Sex: Female
  Weight: 83.99 kg

DRUGS (6)
  1. PROTONIX [Suspect]
     Indication: GASTROENTERITIS
     Route: 048
     Dates: start: 20080112, end: 20080113
  2. DARVOCET-N 100 [Concomitant]
  3. ZOCOR [Concomitant]
  4. AMBIEN [Concomitant]
  5. ATIVAN [Concomitant]
  6. INDERAL [Concomitant]

REACTIONS (3)
  - ANXIETY [None]
  - FLATULENCE [None]
  - PSYCHOMOTOR HYPERACTIVITY [None]
